FAERS Safety Report 25771763 (Version 1)
Quarter: 2025Q3

REPORT INFORMATION
  Report Type: Spontaneous
  Country: US (occurrence: US)
  Receive Date: 20250908
  Receipt Date: 20250908
  Transmission Date: 20251021
  Serious: Yes (Death, Hospitalization)
  Sender: ROCHE
  Company Number: US-ROCHE-10000378268

PATIENT
  Age: 45 Year
  Sex: Female

DRUGS (7)
  1. OCRELIZUMAB [Suspect]
     Active Substance: OCRELIZUMAB
     Indication: Multiple sclerosis
     Route: 065
  2. LEFLUNOMIDE [Suspect]
     Active Substance: LEFLUNOMIDE
     Indication: Multiple sclerosis
     Route: 065
  3. BACLOFEN [Concomitant]
     Active Substance: BACLOFEN
     Indication: Multiple sclerosis
  4. GABAPENTIN [Concomitant]
     Active Substance: GABAPENTIN
     Indication: Multiple sclerosis
  5. LIDOCAINE [Concomitant]
     Active Substance: LIDOCAINE
     Indication: Pain
  6. BUPIVACAINE [Concomitant]
     Active Substance: BUPIVACAINE
     Indication: Pain
  7. ACETAMINOPHEN [Concomitant]
     Active Substance: ACETAMINOPHEN
     Indication: Pain

REACTIONS (5)
  - Brain oedema [Fatal]
  - Cardiac arrest [Fatal]
  - Encephalopathy [Unknown]
  - Hyperammonaemia [Unknown]
  - Ureaplasma infection [Unknown]
